FAERS Safety Report 5757639-0 (Version None)
Quarter: 2008Q2

REPORT INFORMATION
  Report Type: 
  Country: None (occurrence: None)
  Receive Date: 20080603
  Receipt Date: 20080526
  Transmission Date: 20081010
  Serious: Yes (Hospitalization)
  Sender: FDA-Public Use
  Company Number: FR-ABBOTT-08P-056-0453696-00

PATIENT
  Sex: Male

DRUGS (8)
  1. ZECLAR [Suspect]
     Indication: MYCOBACTERIUM AVIUM COMPLEX INFECTION
     Route: 048
     Dates: start: 20080212, end: 20080408
  2. ZECLAR [Suspect]
     Dates: start: 20080426
  3. RIFAMPICIN [Suspect]
     Indication: MYCOBACTERIUM AVIUM COMPLEX INFECTION
     Route: 048
     Dates: start: 20080117, end: 20080408
  4. RIFAMPICIN [Suspect]
     Dates: start: 20080426
  5. ETHAMBUTOL HYDROCHLORIDE [Suspect]
     Indication: MYCOBACTERIUM AVIUM COMPLEX INFECTION
     Route: 048
     Dates: start: 20080117, end: 20080408
  6. ETHAMBUTOL HYDROCHLORIDE [Suspect]
     Dates: start: 20080426
  7. PYRAZINAMIDE [Concomitant]
     Indication: PULMONARY TUBERCULOSIS
     Route: 048
     Dates: start: 20080117, end: 20080212
  8. ISONIAZID [Concomitant]
     Indication: PULMONARY TUBERCULOSIS
     Route: 048
     Dates: start: 20080117, end: 20080212

REACTIONS (5)
  - CONFUSIONAL STATE [None]
  - LEUKOPENIA [None]
  - PLATELET COUNT DECREASED [None]
  - PURPURA [None]
  - VASCULITIS [None]
